FAERS Safety Report 4885386-6 (Version None)
Quarter: 2005Q4

REPORT INFORMATION
  Report Type: 
  Country: None (occurrence: None)
  Receive Date: 20051220
  Receipt Date: 20050318
  Transmission Date: 20060501
  Serious: Yes (Other)
  Sender: FDA-Public Use
  Company Number: HQWYE426528MAR05

PATIENT
  Age: 20 Year
  Sex: Female

DRUGS (4)
  1. EFFEXOR XR [Suspect]
     Indication: ANXIETY
     Dosage: 37.5 MG 1X PER 1 DAY, ORAL; 75 MG 1X PER 1 DAY, ORAL
     Route: 048
     Dates: start: 20050101, end: 20050101
  2. EFFEXOR XR [Suspect]
     Indication: DEPRESSION
     Dosage: 37.5 MG 1X PER 1 DAY, ORAL; 75 MG 1X PER 1 DAY, ORAL
     Route: 048
     Dates: start: 20050101, end: 20050101
  3. EFFEXOR XR [Suspect]
     Indication: ANXIETY
     Dosage: 37.5 MG 1X PER 1 DAY, ORAL; 75 MG 1X PER 1 DAY, ORAL
     Route: 048
     Dates: start: 20050101, end: 20050201
  4. EFFEXOR XR [Suspect]
     Indication: DEPRESSION
     Dosage: 37.5 MG 1X PER 1 DAY, ORAL; 75 MG 1X PER 1 DAY, ORAL
     Route: 048
     Dates: start: 20050101, end: 20050201

REACTIONS (5)
  - ABNORMAL DREAMS [None]
  - ANXIETY [None]
  - DRUG WITHDRAWAL SYNDROME [None]
  - NIGHTMARE [None]
  - PANIC ATTACK [None]
